FAERS Safety Report 4539015-1 (Version None)
Quarter: 2004Q4

REPORT INFORMATION
  Report Type: 
  Country: None (occurrence: None)
  Receive Date: 20041222
  Receipt Date: 20041206
  Transmission Date: 20050328
  Serious: Yes (Hospitalization)
  Sender: FDA-Public Use
  Company Number: CEL-2004-02125-ROC

PATIENT
  Age: 52 Year
  Sex: Male

DRUGS (8)
  1. METOLAZONE [Suspect]
     Indication: HYPERTENSION
     Dates: start: 20041107, end: 20041107
  2. MICARDIS [Suspect]
     Dates: end: 20041108
  3. COZAAR [Suspect]
     Dates: end: 20041108
  4. LASIX [Suspect]
     Indication: HYPERTENSION
     Dates: start: 20041101, end: 20041108
  5. METOPROLOL TARTRATE [Concomitant]
  6. VERAPAMIL [Concomitant]
  7. . [Concomitant]
  8. . [Concomitant]

REACTIONS (6)
  - ATRIAL NATRIURETIC PEPTIDE INCREASED [None]
  - CARDIAC FAILURE [None]
  - ELECTROCARDIOGRAM CHANGE [None]
  - ELECTROCARDIOGRAM ST SEGMENT DEPRESSION [None]
  - RENAL FAILURE ACUTE [None]
  - SYNCOPE [None]
